FAERS Safety Report 6419343-5 (Version None)
Quarter: 2009Q4

REPORT INFORMATION
  Report Type: 
  Country: None (occurrence: None)
  Receive Date: 20091029
  Receipt Date: 20091020
  Transmission Date: 20100525
  Serious: Yes (Hospitalization)
  Sender: FDA-Public Use
  Company Number: FR-BAYER-200936518GPV

PATIENT
  Age: 16 Year
  Sex: Male

DRUGS (1)
  1. BILTRICIDE [Suspect]
     Indication: DRUG USE FOR UNKNOWN INDICATION
     Dosage: TOTAL DAILY DOSE: 5 DF
     Route: 048
     Dates: start: 20090331, end: 20090331

REACTIONS (1)
  - CYTOLYTIC HEPATITIS [None]
